FAERS Safety Report 10880501 (Version 2)
Quarter: 2015Q2

REPORT INFORMATION
  Report Type: Spontaneous
  Country: US (occurrence: US)
  Receive Date: 20150303
  Receipt Date: 20150526
  Transmission Date: 20150821
  Serious: No
  Sender: FDA-Public Use
  Company Number: US-ASTRAZENECA-2015SE16946

PATIENT
  Age: 29661 Day
  Sex: Female
  Weight: 86.2 kg

DRUGS (3)
  1. ARRHYTHMIA MEDICATION [Concomitant]
     Indication: ARRHYTHMIA
  2. SYMBICORT [Suspect]
     Active Substance: BUDESONIDE\FORMOTEROL FUMARATE DIHYDRATE
     Indication: CHRONIC OBSTRUCTIVE PULMONARY DISEASE
     Dosage: DAILY
     Route: 055
  3. SYMBICORT [Suspect]
     Active Substance: BUDESONIDE\FORMOTEROL FUMARATE DIHYDRATE
     Indication: CHRONIC OBSTRUCTIVE PULMONARY DISEASE
     Dosage: 160 UG 2 PUFFS, BID
     Route: 055
     Dates: start: 20141231

REACTIONS (2)
  - Intentional product misuse [Unknown]
  - Rash pruritic [Unknown]

NARRATIVE: CASE EVENT DATE: 20150115
